FAERS Safety Report 24954961 (Version 1)
Quarter: 2025Q1

REPORT INFORMATION
  Report Type: Spontaneous
  Country: US (occurrence: None)
  Receive Date: 20250211
  Receipt Date: 20250211
  Transmission Date: 20250409
  Serious: Yes (Hospitalization)
  Sender: FDA-CTU
  Company Number: None

PATIENT
  Age: 10 Year
  Sex: Male
  Weight: 29.7 kg

DRUGS (2)
  1. METHOTREXATE [Suspect]
     Active Substance: METHOTREXATE
     Dates: end: 20250128
  2. VINCRISTINE SULFATE [Suspect]
     Active Substance: VINCRISTINE SULFATE
     Dates: end: 20250128

REACTIONS (4)
  - Febrile neutropenia [None]
  - Appetite disorder [None]
  - Haemoglobin decreased [None]
  - Influenza [None]

NARRATIVE: CASE EVENT DATE: 20250130
